FAERS Safety Report 18783153 (Version 1)
Quarter: 2021Q1

REPORT INFORMATION
  Report Type: Spontaneous
  Country: US (occurrence: US)
  Receive Date: 20210125
  Receipt Date: 20210125
  Transmission Date: 20210419
  Serious: Yes (Other)
  Sender: FDA-Public Use
  Company Number: US-SA-2021SA017647

PATIENT
  Age: 59 Year
  Sex: Male

DRUGS (1)
  1. ZANTAC [Suspect]
     Active Substance: RANITIDINE HYDROCHLORIDE
     Indication: GASTRIC ULCER
     Dosage: 150 MG, AS NEEDED
     Dates: start: 199201, end: 202005

REACTIONS (2)
  - Melanoma recurrent [Unknown]
  - Prostate cancer recurrent [Unknown]

NARRATIVE: CASE EVENT DATE: 20080401
